FAERS Safety Report 7335302-2 (Version None)
Quarter: 2011Q1

REPORT INFORMATION
  Report Type: 
  Country: None (occurrence: None)
  Receive Date: 20110307
  Receipt Date: 20110221
  Transmission Date: 20110831
  Serious: Yes (Other)
  Sender: FDA-Public Use
  Company Number: PHHY2010US11420

PATIENT
  Sex: Female
  Weight: 72 kg

DRUGS (15)
  1. POTASSIUM [Concomitant]
  2. IMDUR [Concomitant]
  3. HYDROCHLOROTHIAZIDE [Concomitant]
  4. GLEEVEC [Suspect]
     Indication: LEUKAEMIA
     Dosage: 400 MG, QD
     Route: 048
     Dates: start: 20091001
  5. COLACE [Concomitant]
  6. IRON [Concomitant]
  7. VASOTEC [Concomitant]
  8. RANEXA [Concomitant]
  9. INSULIN [Concomitant]
  10. ATENOLOL [Concomitant]
  11. ASPIRIN [Concomitant]
  12. NITROGLYCERIN [Concomitant]
  13. PEPCID [Concomitant]
  14. ZOCOR [Concomitant]
  15. NORVASC [Concomitant]

REACTIONS (7)
  - HAEMATOCHEZIA [None]
  - HAEMORRHOIDS [None]
  - WEIGHT INCREASED [None]
  - NAUSEA [None]
  - DIARRHOEA [None]
  - MUSCLE SPASMS [None]
  - MYALGIA [None]
